FAERS Safety Report 7213755-8 (Version None)
Quarter: 2011Q1

REPORT INFORMATION
  Report Type: 
  Country: None (occurrence: None)
  Receive Date: 20110106
  Receipt Date: 20101231
  Transmission Date: 20110831
  Serious: Yes (Death)
  Sender: FDA-Public Use
  Company Number: GB-PFIZER INC-2010173342

PATIENT
  Age: 33 Year
  Sex: Female
  Weight: 78 kg

DRUGS (3)
  1. VENLAFAXINE HCL [Suspect]
     Indication: DEPRESSION
     Dosage: 225 MG, 1X/DAY
     Route: 048
     Dates: start: 20050101, end: 20090507
  2. CLOZAPINE [Suspect]
     Indication: SCHIZOPHRENIA
     Dosage: 650 MG, 1X/DAY
     Route: 048
     Dates: start: 20050101, end: 20090507
  3. EPILIM [Suspect]
     Indication: CONVULSION
     Dosage: 300 MG, 2X/DAY
     Route: 048
     Dates: start: 20090101, end: 20090507

REACTIONS (4)
  - EPILEPSY [None]
  - CYANOSIS [None]
  - FALL [None]
  - VOMITING [None]
